FAERS Safety Report 7345491-1 (Version None)
Quarter: 2011Q1

REPORT INFORMATION
  Report Type: 
  Country: None (occurrence: None)
  Receive Date: 20110310
  Receipt Date: 20110304
  Transmission Date: 20110831
  Serious: Yes (Hospitalization)
  Sender: FDA-Public Use
  Company Number: PHHO2011TR04149

PATIENT
  Sex: Male
  Weight: 39 kg

DRUGS (5)
  1. ACZ885 [Suspect]
     Indication: JUVENILE ARTHRITIS
     Dosage: 0.98 ML, ONCE/SINGLE
     Route: 058
     Dates: start: 20110128
  2. ACZ885 [Suspect]
     Dosage: 1.04 ML, ONCE/SINGLE
     Route: 058
     Dates: start: 20110228
  3. DELTACORTRIL [Concomitant]
  4. FERRO-SANOL B [Concomitant]
  5. ZANTAC [Concomitant]

REACTIONS (11)
  - SERUM FERRITIN INCREASED [None]
  - JUVENILE ARTHRITIS [None]
  - LIVER FUNCTION TEST ABNORMAL [None]
  - LYMPHADENOPATHY [None]
  - HISTIOCYTOSIS HAEMATOPHAGIC [None]
  - ABDOMINAL PAIN [None]
  - RASH [None]
  - HEPATOSPLENOMEGALY [None]
  - C-REACTIVE PROTEIN INCREASED [None]
  - CONDITION AGGRAVATED [None]
  - PYREXIA [None]
